FAERS Safety Report 22626814 (Version 1)
Quarter: 2023Q2

REPORT INFORMATION
  Report Type: Report from Study
  Country: FR (occurrence: FR)
  Receive Date: 20230622
  Receipt Date: 20230622
  Transmission Date: 20230722
  Serious: Yes (Hospitalization)
  Sender: FDA-Public Use
  Company Number: FR-AMGEN-FRACT2023106010

PATIENT
  Age: 56 Year
  Sex: Female
  Weight: 53 kg

DRUGS (13)
  1. BLINATUMOMAB [Suspect]
     Active Substance: BLINATUMOMAB
     Indication: Acute lymphocytic leukaemia
     Dosage: 1040 MICROGRAM
     Route: 058
     Dates: start: 20230502
  2. PENICILLIN V [Concomitant]
     Active Substance: PENICILLIN V
     Dosage: 1 UNK
     Route: 048
     Dates: start: 20230502, end: 20230526
  3. VALACYCLOVIR HYDROCHLORIDE [Concomitant]
     Active Substance: VALACYCLOVIR HYDROCHLORIDE
     Dosage: 500 MILLIGRAM
     Route: 048
     Dates: start: 20230502, end: 20230526
  4. COTRIMOXAZOLE [Concomitant]
     Active Substance: SULFAMETHOXAZOLE\TRIMETHOPRIM
     Dosage: 1 UNK
     Route: 048
     Dates: start: 20230503, end: 20230526
  5. ISAVUCONAZOLE [Concomitant]
     Active Substance: ISAVUCONAZOLE
     Dosage: 100 MILLIGRAM
     Route: 048
     Dates: start: 20230503, end: 20230523
  6. LETERMOVIR [Concomitant]
     Active Substance: LETERMOVIR
     Dosage: 480 MILLIGRAM
     Route: 048
     Dates: start: 20230503, end: 20230526
  7. ACETAMINOPHEN [Concomitant]
     Active Substance: ACETAMINOPHEN
     Dosage: 1 GRAM
     Route: 042
     Dates: start: 20230503, end: 20230526
  8. URAPIDIL [Concomitant]
     Active Substance: URAPIDIL
     Dosage: 30 MILLIGRAM
     Route: 048
     Dates: start: 20230503, end: 20230517
  9. LEUCOVORIN CALCIUM [Concomitant]
     Active Substance: LEUCOVORIN CALCIUM
     Dosage: 25 MILLIGRAM
     Route: 048
     Dates: start: 20230504, end: 20230525
  10. ZOPICLONE [Concomitant]
     Active Substance: ZOPICLONE
     Dosage: 3.75 MILLIGRAM
     Route: 048
     Dates: start: 20230505, end: 20230525
  11. LANSOPRAZOLE [Concomitant]
     Active Substance: LANSOPRAZOLE
     Dosage: 30 MILLIGRAM
     Route: 048
     Dates: start: 20230512, end: 20230526
  12. LIDOCAINE [Concomitant]
     Active Substance: LIDOCAINE
     Dosage: 200 MILLIGRAM
     Route: 058
     Dates: start: 20230516, end: 20230524
  13. ECONAZOLE [Concomitant]
     Active Substance: ECONAZOLE
     Dosage: 1 UNK
     Route: 061
     Dates: start: 20230518, end: 20230526

REACTIONS (1)
  - Rectal haemorrhage [Not Recovered/Not Resolved]

NARRATIVE: CASE EVENT DATE: 20230616
